FAERS Safety Report 5388010-1 (Version None)
Quarter: 2007Q3

REPORT INFORMATION
  Report Type: 
  Country: None (occurrence: None)
  Receive Date: 20070712
  Receipt Date: 20070702
  Transmission Date: 20080115
  Serious: Yes (Disabling)
  Sender: FDA-Public Use
  Company Number: 16920

PATIENT
  Age: 20 Year
  Sex: Female

DRUGS (1)
  1. ACETYLCYSTEINE [Suspect]
     Dosage: 2.7 G ONCE IV
     Route: 042
     Dates: start: 20061219, end: 20061220

REACTIONS (1)
  - ANAPHYLACTIC REACTION [None]
